FAERS Safety Report 8348373-1 (Version None)
Quarter: 2012Q2

REPORT INFORMATION
  Report Type: 
  Country: None (occurrence: None)
  Receive Date: 20120509
  Receipt Date: 20120427
  Transmission Date: 20120825
  Serious: Yes (Hospitalization)
  Sender: FDA-Public Use
  Company Number: DE-ROCHE-1064236

PATIENT

DRUGS (2)
  1. XELODA [Suspect]
     Indication: RECTAL CANCER
  2. OXALIPLATIN [Suspect]
     Indication: RECTAL CANCER

REACTIONS (1)
  - BLOOD CREATINE ABNORMAL [None]
